FAERS Safety Report 17054968 (Version 1)
Quarter: 2019Q4

REPORT INFORMATION
  Report Type: Spontaneous
  Country: US (occurrence: US)
  Receive Date: 20191120
  Receipt Date: 20191120
  Transmission Date: 20200122
  Serious: No
  Sender: FDA-Public Use
  Company Number: US-SA-2019SA321586

PATIENT
  Sex: Female

DRUGS (6)
  1. ZOMETA [Concomitant]
     Active Substance: ZOLEDRONIC ACID
  2. FASLODEX [Concomitant]
     Active Substance: FULVESTRANT
  3. TAXOTERE [Suspect]
     Active Substance: DOCETAXEL
     Dosage: UNK UNK, UNK
     Route: 065
  4. IBRANCE [Concomitant]
     Active Substance: PALBOCICLIB
     Dosage: 125 MG, QD
     Route: 065
  5. PRINIVIL [Concomitant]
     Active Substance: LISINOPRIL
  6. NORVASC [Concomitant]
     Active Substance: AMLODIPINE BESYLATE

REACTIONS (1)
  - Hypersensitivity [Unknown]
